FAERS Safety Report 9343595 (Version 4)
Quarter: 2013Q4

REPORT INFORMATION
  Report Type: Report from Study
  Country: KR (occurrence: KR)
  Receive Date: 20130612
  Receipt Date: 20131101
  Transmission Date: 20140711
  Serious: Yes (Hospitalization)
  Sender: FDA-Public Use
  Company Number: KR-ROCHE-1231007

PATIENT
  Age: 55 Year
  Sex: Female
  Weight: 47.3 kg

DRUGS (13)
  1. TRASTUZUMAB EMTANSINE [Suspect]
     Indication: BREAST CANCER
     Dosage: DATE OF MOST RECENT DOSE (3.6 MG/KG) PRIOR TO AE ONSET: 09/MAY/2013
     Route: 042
     Dates: start: 20120213
  2. MAG-OX [Concomitant]
     Indication: CONSTIPATION
     Route: 065
     Dates: start: 20120113
  3. SYNTHYROID [Concomitant]
     Indication: HYPOTHYROIDISM
     Route: 065
     Dates: start: 200912
  4. MEGACE [Concomitant]
     Indication: DECREASED APPETITE
     Route: 065
     Dates: start: 20120829
  5. MEGACE [Concomitant]
     Route: 065
     Dates: start: 20130415, end: 20130418
  6. OXYCODONE [Concomitant]
     Indication: BACK PAIN
     Route: 065
     Dates: start: 20120829
  7. OXYCODONE [Concomitant]
     Route: 065
     Dates: start: 20121010
  8. CHLORPHENIRAMINE MALEATE [Concomitant]
     Route: 065
     Dates: start: 20130415, end: 20130415
  9. CHLORPHENIRAMINE MALEATE [Concomitant]
     Route: 065
     Dates: start: 20130509, end: 20130509
  10. TACENOL ER [Concomitant]
     Route: 065
     Dates: start: 20130415, end: 20130415
  11. TACENOL ER [Concomitant]
     Route: 065
     Dates: start: 20130509, end: 20130509
  12. ZOMETA [Concomitant]
     Indication: METASTASES TO BONE
     Route: 065
     Dates: start: 20130415, end: 20130415
  13. ZOMETA [Concomitant]
     Route: 065
     Dates: start: 20130509, end: 20130509

REACTIONS (1)
  - Asthenia [Recovered/Resolved]
